FAERS Safety Report 9422841 (Version 1)
Quarter: 2013Q3

REPORT INFORMATION
  Report Type: Spontaneous
  Country: FR (occurrence: FR)
  Receive Date: 20130726
  Receipt Date: 20130726
  Transmission Date: 20140515
  Serious: Yes (Hospitalization, Other)
  Sender: FDA-Public Use
  Company Number: FR-TEVA-421113ISR

PATIENT
  Age: 82 Year
  Sex: Male

DRUGS (10)
  1. FUROSEMIDE TEVA 40 MG [Suspect]
     Route: 048
  2. AMLOR 5 MG [Concomitant]
     Dosage: 5 MILLIGRAM DAILY; ON MORNING
  3. BISOCE 1.25 MG [Concomitant]
     Dosage: 1.25 MILLIGRAM DAILY; ON MORNING
  4. CITALOPRAM 20 MG [Concomitant]
     Dosage: .5 TABLET DAILY;
  5. INEXIUM 40 MG [Concomitant]
     Dosage: 40 MILLIGRAM DAILY; EVENING
  6. KARDEGIC [Concomitant]
  7. PLAVIX [Concomitant]
  8. TRIATEC 1.25 [Concomitant]
  9. CALCIPARINE 0.2 [Concomitant]
     Dosage: 0.2 X 2
  10. NOVOMIX [Concomitant]
     Dosage: 32 U MORNING, 30 U EVENING

REACTIONS (14)
  - Somnolence [Unknown]
  - Oedema [Unknown]
  - Fall [Unknown]
  - Drug ineffective [Unknown]
  - Somnolence [Unknown]
  - Renal failure [Unknown]
  - Muscular weakness [Unknown]
  - Immobilisation prolonged [Unknown]
  - Scab [Unknown]
  - Cardiac failure [Unknown]
  - Musculoskeletal pain [Unknown]
  - Iron deficiency anaemia [Unknown]
  - Faeces discoloured [Unknown]
  - Urinary tract infection [Unknown]
